FAERS Safety Report 13391102 (Version 1)
Quarter: 2017Q1

REPORT INFORMATION
  Report Type: Spontaneous
  Country: US (occurrence: US)
  Receive Date: 20170331
  Receipt Date: 20170331
  Transmission Date: 20170429
  Serious: Yes (Other)
  Sender: FDA-Public Use
  Company Number: US-SHIONOGI, INC.-2017000073

PATIENT
  Age: 59 Year
  Sex: Female
  Weight: 62.13 kg

DRUGS (2)
  1. OSPHENA [Suspect]
     Active Substance: OSPEMIFENE
     Indication: DYSPAREUNIA
     Dosage: 60 MG, QD
     Route: 048
     Dates: start: 20150312, end: 201701
  2. OSPHENA [Suspect]
     Active Substance: OSPEMIFENE
     Indication: ATROPHIC VULVOVAGINITIS

REACTIONS (2)
  - Abdominal pain lower [Unknown]
  - Endometriosis [Unknown]

NARRATIVE: CASE EVENT DATE: 201612
